FAERS Safety Report 6674803-7 (Version None)
Quarter: 2010Q2

REPORT INFORMATION
  Report Type: 
  Country: None (occurrence: None)
  Receive Date: 20100409
  Receipt Date: 20100330
  Transmission Date: 20101027
  Serious: Yes (Other)
  Sender: FDA-Public Use
  Company Number: US-JNJCH-2010007921

PATIENT
  Age: 47 Year
  Sex: Female
  Weight: 58.1 kg

DRUGS (6)
  1. LISTERINE WHITENING QUICK DISSOLVING STRIPS [Suspect]
     Indication: DENTAL CARE
     Dosage: TEXT:ONE STRIP ON THE TOP TEETH ONCE
     Route: 048
     Dates: start: 20100310, end: 20100310
  2. ARAVA [Concomitant]
     Indication: ARTHRITIS
     Dosage: TEXT:1 A DAY
     Route: 065
  3. PLAQUENIL [Concomitant]
     Indication: ARTHRITIS
     Dosage: TEXT:2 A DAY
     Route: 065
  4. NAPROXEN SODIUM [Concomitant]
     Indication: ARTHRITIS
     Dosage: TEXT:2 A DAY
     Route: 065
  5. SYNTHROID [Concomitant]
     Indication: THYROID DISORDER
     Dosage: TEXT:UNKNOWN
     Route: 065
  6. ALLEGRA [Concomitant]
     Indication: SEASONAL ALLERGY
     Dosage: TEXT:UNKNOWN
     Route: 065

REACTIONS (4)
  - APPLICATION SITE BURN [None]
  - APPLICATION SITE PAIN [None]
  - APPLICATION SITE VESICLES [None]
  - PRODUCT QUALITY ISSUE [None]
